FAERS Safety Report 21586847 (Version 1)
Quarter: 2022Q4

REPORT INFORMATION
  Report Type: Spontaneous
  Country: US (occurrence: None)
  Receive Date: 20221110
  Receipt Date: 20221110
  Transmission Date: 20230112
  Serious: No
  Sender: FDA-Public Use
  Company Number: None

PATIENT
  Sex: Female

DRUGS (1)
  1. CAPECITABINE [Suspect]
     Active Substance: CAPECITABINE
     Dosage: 2500MG BID ORAL?
     Route: 048

REACTIONS (4)
  - Rash [None]
  - Skin discolouration [None]
  - Economic problem [None]
  - Product dose omission issue [None]
